FAERS Safety Report 21061742 (Version 7)
Quarter: 2023Q1

REPORT INFORMATION
  Report Type: Other
  Country: US (occurrence: US)
  Receive Date: 20220710
  Receipt Date: 20230328
  Transmission Date: 20230418
  Serious: Yes (Hospitalization, Other)
  Sender: FDA-Public Use
  Company Number: US-GBT-013893

PATIENT
  Sex: Male
  Weight: 30.391 kg

DRUGS (7)
  1. OXBRYTA [Suspect]
     Active Substance: VOXELOTOR
     Indication: Product used for unknown indication
     Route: 048
  2. OXBRYTA [Suspect]
     Active Substance: VOXELOTOR
     Indication: Product used for unknown indication
     Route: 048
  3. OXBRYTA [Suspect]
     Active Substance: VOXELOTOR
     Indication: Product used for unknown indication
     Dosage: TIME INTERVAL: 0.33333333 DAYS
     Route: 048
     Dates: start: 2022
  4. PENICILLIN [Concomitant]
     Active Substance: PENICILLIN
  5. ALBUTEROL [Concomitant]
     Active Substance: ALBUTEROL
  6. CLARITIN [Concomitant]
     Active Substance: LORATADINE
  7. HYDROXYUREA [Concomitant]
     Active Substance: HYDROXYUREA

REACTIONS (13)
  - Pneumonia [Unknown]
  - Product use complaint [Unknown]
  - Product dose omission issue [Unknown]
  - Rhinovirus infection [Unknown]
  - Full blood count decreased [Unknown]
  - Diarrhoea [Recovered/Resolved]
  - Respiratory syncytial virus infection [Unknown]
  - Rash [Recovered/Resolved]
  - Therapy interrupted [Unknown]
  - Off label use [Unknown]
  - Viral infection [Unknown]
  - Pain in extremity [Recovered/Resolved]
  - Nausea [Not Recovered/Not Resolved]

NARRATIVE: CASE EVENT DATE: 20220101
